FAERS Safety Report 10135818 (Version 10)
Quarter: 2014Q3

REPORT INFORMATION
  Report Type: Spontaneous
  Country: US (occurrence: US)
  Receive Date: 20140428
  Receipt Date: 20140805
  Transmission Date: 20150326
  Serious: Yes (Other)
  Sender: FDA-Public Use
  Company Number: PHEH2012US026115

PATIENT
  Sex: Female
  Weight: 106 kg

DRUGS (3)
  1. ZOMETA [Suspect]
     Active Substance: ZOLEDRONIC ACID
     Indication: NEOPLASM MALIGNANT
     Dosage: UNK UKN, UNK
     Route: 042
     Dates: start: 2002, end: 2012
  2. CHEMOTHERAPEUTICS [Suspect]
     Active Substance: UNSPECIFIED INGREDIENT
     Dosage: UNK UKN, UNK
  3. FASLODEX [Concomitant]
     Active Substance: FULVESTRANT
     Dosage: UNK UKN, UNK

REACTIONS (161)
  - Pain [Unknown]
  - Injury [Unknown]
  - Hypertension [Unknown]
  - Thyroid disorder [Unknown]
  - Jaw disorder [Unknown]
  - Gingival bleeding [Unknown]
  - Throat tightness [Unknown]
  - Laryngeal inflammation [Unknown]
  - Tooth abscess [Unknown]
  - Sinus headache [Unknown]
  - Myofascial pain syndrome [Unknown]
  - Lymphoedema [Unknown]
  - Essential hypertension [Unknown]
  - Amnesia [Unknown]
  - Urinary incontinence [Unknown]
  - Diverticulitis [Unknown]
  - Blister [Unknown]
  - Salivary gland calculus [Unknown]
  - Sensitivity of teeth [Unknown]
  - Neuropathy peripheral [Unknown]
  - Lower extremity mass [Unknown]
  - Petechiae [Unknown]
  - Bone lesion [Unknown]
  - Arthralgia [Unknown]
  - Nocturia [Unknown]
  - Emotional distress [Unknown]
  - Anxiety [Unknown]
  - Fall [Unknown]
  - Hypothyroidism [Unknown]
  - Sinus disorder [Unknown]
  - Eye pruritus [Unknown]
  - Temporomandibular joint syndrome [Unknown]
  - Cellulitis [Unknown]
  - Diverticulum [Unknown]
  - Intervertebral disc degeneration [Unknown]
  - Hepatic lesion [Unknown]
  - Hyperlipidaemia [Unknown]
  - Bone cancer metastatic [Unknown]
  - Bone fragmentation [Unknown]
  - Bone loss [Unknown]
  - Oral discharge [Unknown]
  - Eye swelling [Unknown]
  - Headache [Unknown]
  - Diarrhoea [Unknown]
  - Weight bearing difficulty [Unknown]
  - Productive cough [Unknown]
  - Deformity [Unknown]
  - Arthritis [Unknown]
  - Gastrooesophageal reflux disease [Unknown]
  - Dysgeusia [Unknown]
  - Sinusitis [Unknown]
  - Lacrimation increased [Unknown]
  - Bruxism [Unknown]
  - Hepatic cyst [Unknown]
  - Chondromalacia [Unknown]
  - Radiculopathy [Unknown]
  - Hip fracture [Unknown]
  - Osteolysis [Unknown]
  - Malignant neoplasm progression [Unknown]
  - Vulvovaginal discomfort [Unknown]
  - Vaginal haemorrhage [Unknown]
  - Vertebral foraminal stenosis [Unknown]
  - Oedema mucosal [Unknown]
  - Pain in extremity [Unknown]
  - Erythema [Unknown]
  - Myalgia [Unknown]
  - Neck pain [Unknown]
  - Fatigue [Unknown]
  - Sleep disorder [Unknown]
  - Vomiting [Unknown]
  - Cough [Unknown]
  - Joint stiffness [Unknown]
  - Osteonecrosis of jaw [Recovering/Resolving]
  - Exposed bone in jaw [Unknown]
  - Gingival disorder [Unknown]
  - Rhinitis [Unknown]
  - Lower limb fracture [Unknown]
  - Fibromyalgia [Unknown]
  - Anaemia [Unknown]
  - Cervix carcinoma [Unknown]
  - Spondylolisthesis [Unknown]
  - Haemangioma [Unknown]
  - Osteoarthritis [Unknown]
  - Spinal osteoarthritis [Unknown]
  - Intervertebral disc displacement [Unknown]
  - Cyst [Unknown]
  - Post procedural discharge [Unknown]
  - Skin discolouration [Unknown]
  - Post procedural complication [Unknown]
  - Musculoskeletal discomfort [Unknown]
  - Gait disturbance [Unknown]
  - Tendonitis [Unknown]
  - Nasal inflammation [Unknown]
  - Periodontal disease [Unknown]
  - Haemangioma of skin [Unknown]
  - Vascular calcification [Unknown]
  - Pathological fracture [Unknown]
  - Pulmonary granuloma [Unknown]
  - Metatarsalgia [Unknown]
  - External ear disorder [Unknown]
  - Osteosclerosis [Unknown]
  - Bursitis [Unknown]
  - Pollakiuria [Unknown]
  - Nasal mucosal disorder [Unknown]
  - Swelling [Unknown]
  - Primary sequestrum [Unknown]
  - Oedema [Unknown]
  - Tongue discolouration [Unknown]
  - Musculoskeletal pain [Unknown]
  - Physical disability [Unknown]
  - Stress fracture [Unknown]
  - Benign neoplasm of thyroid gland [Unknown]
  - Osteoporosis [Unknown]
  - Calcinosis [Unknown]
  - Sinus congestion [Unknown]
  - Joint effusion [Unknown]
  - Upper respiratory tract infection [Unknown]
  - Proctitis [Unknown]
  - Peroneal nerve palsy [Unknown]
  - Metastases to spine [Unknown]
  - Rhinitis allergic [Unknown]
  - Ligament sprain [Unknown]
  - Deep vein thrombosis [Unknown]
  - Metastases to bone [Unknown]
  - Tympanic membrane scarring [Unknown]
  - Exostosis [Unknown]
  - Induration [Unknown]
  - Fistula discharge [Unknown]
  - Rash [Unknown]
  - Infection [Unknown]
  - Tooth loss [Unknown]
  - Eye irritation [Unknown]
  - Vaginal infection [Unknown]
  - Thyroid neoplasm [Unknown]
  - Renal cyst [Unknown]
  - Faecal incontinence [Unknown]
  - Dry mouth [Unknown]
  - Muscular weakness [Unknown]
  - Palmar-plantar erythrodysaesthesia syndrome [Unknown]
  - Contusion [Unknown]
  - Bone fistula [Unknown]
  - Joint swelling [Unknown]
  - Breast cancer metastatic [Unknown]
  - Epistaxis [Unknown]
  - Toothache [Unknown]
  - Wound [Unknown]
  - Blood blister [Unknown]
  - Periarthritis [Unknown]
  - Joint dislocation [Unknown]
  - Vaginal discharge [Unknown]
  - Bacterial vaginosis [Unknown]
  - Impaired healing [Unknown]
  - Synovial cyst [Unknown]
  - Fibrous histiocytoma [Unknown]
  - Hyperglycaemia [Unknown]
  - Upper-airway cough syndrome [Unknown]
  - Facet joint syndrome [Unknown]
  - Bone hyperpigmentation [Unknown]
  - Herpes zoster cutaneous disseminated [Unknown]
  - Metastases to bone marrow [Unknown]
  - Bone pain [Unknown]
